FAERS Safety Report 19303783 (Version 1)
Quarter: 2021Q2

REPORT INFORMATION
  Report Type: Other
  Country: US (occurrence: US)
  Receive Date: 20210525
  Receipt Date: 20210525
  Transmission Date: 20210717
  Serious: Yes (Other)
  Sender: FDA-Public Use
  Company Number: US-ROCHE-2832197

PATIENT
  Sex: Male

DRUGS (9)
  1. OCREVUS [Suspect]
     Active Substance: OCRELIZUMAB
     Indication: RELAPSING MULTIPLE SCLEROSIS
     Dosage: STRENGTH: 300 MG/ 10 ML?DATE OF TREATMENT: 26/MAR/2018, 27/SEP/2018, /FEB/2021.
     Route: 042
     Dates: start: 20180312
  2. NEURONTIN [Concomitant]
     Active Substance: GABAPENTIN
     Route: 048
  3. DITROPAN XL [Concomitant]
     Active Substance: OXYBUTYNIN CHLORIDE
     Route: 048
  4. THERAGRAN M [Concomitant]
     Active Substance: VITAMINS
     Route: 048
  5. CHOLECALCIFEROL [Concomitant]
     Active Substance: CHOLECALCIFEROL
     Dosage: 2000 UNIT
     Route: 048
  6. ASPIRIN. [Concomitant]
     Active Substance: ASPIRIN
     Route: 048
  7. CYANOCOBALAMIN. [Concomitant]
     Active Substance: CYANOCOBALAMIN
     Route: 048
  8. TYLENOL [Concomitant]
     Active Substance: ACETAMINOPHEN
     Indication: PAIN
     Route: 048
  9. FISH OIL OMEGA 3 [Concomitant]
     Active Substance: FISH OIL
     Route: 048

REACTIONS (14)
  - Gastrooesophageal reflux disease [Unknown]
  - Leukocytosis [Unknown]
  - Urinary retention [Unknown]
  - Oedema peripheral [Unknown]
  - Sleep apnoea syndrome [Unknown]
  - Hydronephrosis [Unknown]
  - Cystitis [Unknown]
  - Acute kidney injury [Unknown]
  - Gait disturbance [Unknown]
  - Constipation [Unknown]
  - Herpes zoster [Unknown]
  - Essential hypertension [Unknown]
  - Haematuria [Unknown]
  - Urinary incontinence [Unknown]
